FAERS Safety Report 23297827 (Version 1)
Quarter: 2023Q4

REPORT INFORMATION
  Report Type: Other
  Country: CN (occurrence: CN)
  Receive Date: 20231214
  Receipt Date: 20231214
  Transmission Date: 20240110
  Serious: Yes (Hospitalization, Other)
  Sender: FDA-Public Use
  Company Number: CN-ASTELLAS-2023US037075

PATIENT
  Age: 36 Year
  Sex: Male

DRUGS (1)
  1. XOSPATA [Suspect]
     Active Substance: GILTERITINIB
     Indication: Acute myeloid leukaemia
     Route: 048
     Dates: start: 20231104, end: 20231128

REACTIONS (2)
  - Cardiotoxicity [Unknown]
  - Electrocardiogram QT prolonged [Unknown]

NARRATIVE: CASE EVENT DATE: 20231128
